FAERS Safety Report 4526579-7 (Version None)
Quarter: 2004Q4

REPORT INFORMATION
  Report Type: 
  Country: None (occurrence: None)
  Receive Date: 20041214
  Receipt Date: 20041202
  Transmission Date: 20050328
  Serious: Yes (Other)
  Sender: FDA-Public Use
  Company Number: CH-JNJFOC-20041200465

PATIENT
  Age: 29 Year
  Sex: Female
  Weight: 55 kg

DRUGS (6)
  1. RISPERDAL [Suspect]
     Route: 049
  2. RIVOTRIL [Concomitant]
     Indication: AGITATION
     Route: 049
  3. RIVOTRIL [Concomitant]
     Indication: RESTLESSNESS
     Route: 049
  4. PRIADEL [Concomitant]
     Dosage: 800-0-400 MG/DAY
     Route: 049
  5. ASPIRIN [Concomitant]
     Indication: THROMBOSIS
     Route: 049
  6. ASPIRIN [Concomitant]
     Route: 049

REACTIONS (1)
  - EOSINOPHILIA [None]
